FAERS Safety Report 12380553 (Version 2)
Quarter: 2016Q2

REPORT INFORMATION
  Report Type: Report from Study
  Country: CA (occurrence: CA)
  Receive Date: 20160518
  Receipt Date: 20160526
  Transmission Date: 20160815
  Serious: Yes (Other)
  Sender: FDA-Public Use
  Company Number: PHHY2016CA067828

PATIENT
  Age: 65 Year
  Sex: Female

DRUGS (2)
  1. ACLASTA [Suspect]
     Active Substance: ZOLEDRONIC ACID
     Dosage: 1 DF, UNK
     Route: 042
     Dates: start: 20150604, end: 20150604
  2. ACLASTA [Suspect]
     Active Substance: ZOLEDRONIC ACID
     Indication: OSTEOPOROSIS
     Dosage: 1 DF, UNK
     Route: 042
     Dates: start: 20100419

REACTIONS (1)
  - Chronic lymphocytic leukaemia [Unknown]

NARRATIVE: CASE EVENT DATE: 20160314
